FAERS Safety Report 7366641-7 (Version None)
Quarter: 2011Q1

REPORT INFORMATION
  Report Type: 
  Country: None (occurrence: None)
  Receive Date: 20110310
  Receipt Date: 20110228
  Transmission Date: 20110831
  Serious: Yes (Other)
  Sender: FDA-Public Use
  Company Number: 2011MA001924

PATIENT
  Age: 72 Year
  Sex: Male

DRUGS (6)
  1. TARCEVA [Suspect]
     Indication: NON-SMALL CELL LUNG CANCER
     Dosage: 150 MG; QD; PO
     Route: 048
     Dates: start: 20101220
  2. BISOPROLOL [Concomitant]
  3. ALLOPURINOL [Concomitant]
  4. IBUPROFEN [Concomitant]
  5. TRAMADOL HYDROCHLORIDE [Suspect]
     Indication: PAIN
     Dosage: 100 MG; QID; PO
     Route: 048
     Dates: start: 20110120, end: 20110124
  6. PARACETAMOL [Concomitant]

REACTIONS (4)
  - SKIN REACTION [None]
  - METASTASES TO CENTRAL NERVOUS SYSTEM [None]
  - MYOCLONUS [None]
  - RESTLESS LEGS SYNDROME [None]
